FAERS Safety Report 4786773-7 (Version None)
Quarter: 2005Q4

REPORT INFORMATION
  Report Type: 
  Country: None (occurrence: None)
  Receive Date: 20051004
  Receipt Date: 20050921
  Transmission Date: 20060501
  Serious: No
  Sender: FDA-Public Use
  Company Number: US-JNJFOC-20050505289

PATIENT
  Sex: Male

DRUGS (12)
  1. VIADUR [Suspect]
     Indication: PROSTATE CANCER
     Route: 058
  2. ZOLOFT [Concomitant]
     Indication: DEPRESSION
  3. AMBIEN [Concomitant]
     Indication: INSOMNIA
  4. MULTI-VITAMIN [Concomitant]
  5. MULTI-VITAMIN [Concomitant]
  6. MULTI-VITAMIN [Concomitant]
  7. MULTI-VITAMIN [Concomitant]
  8. MULTI-VITAMIN [Concomitant]
  9. MULTI-VITAMIN [Concomitant]
  10. MULTI-VITAMIN [Concomitant]
  11. MULTI-VITAMIN [Concomitant]
  12. WELLBUTRIN [Concomitant]
     Indication: DEPRESSION

REACTIONS (4)
  - DEPRESSION [None]
  - HOT FLUSH [None]
  - MALAISE [None]
  - VISION BLURRED [None]
